FAERS Safety Report 16243033 (Version 2)
Quarter: 2021Q3

REPORT INFORMATION
  Report Type: Spontaneous
  Country: US (occurrence: US)
  Receive Date: 20190426
  Receipt Date: 20210917
  Transmission Date: 20211014
  Serious: Yes (Disabling)
  Sender: FDA-Public Use
  Company Number: US-TEVA-2019-US-1042468

PATIENT
  Age: 49 Year
  Sex: Female
  Weight: 83.9 kg

DRUGS (26)
  1. CYMBALTA [Concomitant]
     Active Substance: DULOXETINE HYDROCHLORIDE
     Dosage: DOSAGE: 30?60 MG
     Dates: start: 20130531, end: 20131125
  2. ALOXI [Concomitant]
     Active Substance: PALONOSETRON HYDROCHLORIDE
     Indication: INVASIVE DUCTAL BREAST CARCINOMA
     Dosage: DOSE: 0.25 MG, ONCE, ADMINISTER 30?60 MINUTES PRIOR TO CHEMOTHERAPY
     Route: 042
     Dates: start: 20150504
  3. SODIUM CHLORIDE. [Concomitant]
     Active Substance: SODIUM CHLORIDE
     Dosage: 0.9%, 500 ML
     Route: 042
     Dates: start: 20150504
  4. CEPHALEXIN. [Concomitant]
     Active Substance: CEPHALEXIN
     Dosage: QID
     Dates: start: 20150313, end: 20150605
  5. CYTOXAN [Suspect]
     Active Substance: CYCLOPHOSPHAMIDE
     Indication: INVASIVE DUCTAL BREAST CARCINOMA
     Dosage: DOSE: 600MG/M2, EVERY 4 WEEKS
     Route: 042
     Dates: start: 20150504, end: 20150708
  6. BUSPIRONE HYDROCHLORIDE. [Concomitant]
     Active Substance: BUSPIRONE HYDROCHLORIDE
     Dates: start: 20131008, end: 20150826
  7. ESCITALOPRAM [Concomitant]
     Active Substance: ESCITALOPRAM OXALATE
     Dosage: 10?20 MG
     Route: 065
     Dates: start: 20140721, end: 20150521
  8. ESCITALOPRAM [Concomitant]
     Active Substance: ESCITALOPRAM OXALATE
     Dates: start: 20150617, end: 20150725
  9. ZOFRAN [Concomitant]
     Active Substance: ONDANSETRON HYDROCHLORIDE
     Route: 042
     Dates: end: 20150708
  10. IRON [Concomitant]
     Active Substance: IRON
     Route: 065
  11. ZOLPIDEM [Concomitant]
     Active Substance: ZOLPIDEM TARTRATE
     Route: 065
     Dates: start: 201201
  12. ALPRAZOLAM. [Concomitant]
     Active Substance: ALPRAZOLAM
     Dosage: .025?1MG
     Dates: start: 20140721, end: 20150316
  13. METRONIDAZOLE. [Concomitant]
     Active Substance: METRONIDAZOLE
     Indication: CLOSTRIDIUM DIFFICILE INFECTION
     Dates: start: 20150419, end: 20150512
  14. LORAZEPAM. [Concomitant]
     Active Substance: LORAZEPAM
     Dates: start: 20120927, end: 20130118
  15. METHYLPHENIDATE. [Concomitant]
     Active Substance: METHYLPHENIDATE
     Dosage: 36?54 MG
     Dates: start: 20140923, end: 20150115
  16. TAMOXIFEN [Concomitant]
     Active Substance: TAMOXIFEN
     Dates: start: 20150724, end: 20160802
  17. DOCETAXEL WINTHROP [Suspect]
     Active Substance: DOCETAXEL
     Indication: INVASIVE DUCTAL BREAST CARCINOMA
     Dosage: DOSAGE: 75MG/M2, NO OF CYCLES: 04, FREQUENCY: EVERY 4 WEEKS
     Route: 042
     Dates: start: 20150504, end: 20150708
  18. DECADRON [Concomitant]
     Active Substance: DEXAMETHASONE
     Indication: INVASIVE DUCTAL BREAST CARCINOMA
     Dosage: ADMINISTER 30?60 MINUTES PRIOR TO CHEMOTHERAPY
     Route: 048
     Dates: start: 20150504, end: 20150708
  19. LEXAPRO [Concomitant]
     Active Substance: ESCITALOPRAM OXALATE
     Dosage: DAILY
     Route: 065
  20. DOCETAXEL SAGENT [Suspect]
     Active Substance: DOCETAXEL
     Indication: INVASIVE DUCTAL BREAST CARCINOMA
     Dosage: DOSAGE: 75MG/M2, NO OF CYCLES: 04, FREQUENCY: EVERY 4 WEEKS
     Route: 042
     Dates: start: 20150504, end: 20150708
  21. TRAZODONE [Concomitant]
     Active Substance: TRAZODONE HYDROCHLORIDE
     Dates: start: 20131210, end: 20150530
  22. ADDERALL [Concomitant]
     Active Substance: AMPHETAMINE ASPARTATE\AMPHETAMINE SULFATE\DEXTROAMPHETAMINE SACCHARATE\DEXTROAMPHETAMINE SULFATE
     Dosage: DAILY
     Route: 065
  23. TYLENOL [Concomitant]
     Active Substance: ACETAMINOPHEN
     Route: 065
  24. CHOLESTYRAMINE. [Concomitant]
     Active Substance: CHOLESTYRAMINE
     Indication: CLOSTRIDIUM DIFFICILE INFECTION
     Dosage: BID
     Route: 065
  25. HYDRO/ACETAMI [Concomitant]
     Dosage: DOSAGE: 7.5?500 MG
     Dates: start: 20110302, end: 20150822
  26. BUPROPION XL [Concomitant]
     Active Substance: BUPROPION
     Dates: start: 20130131, end: 20151022

REACTIONS (10)
  - Hair texture abnormal [Not Recovered/Not Resolved]
  - Alopecia areata [Not Recovered/Not Resolved]
  - Dyspnoea [Unknown]
  - Skin exfoliation [Unknown]
  - Restlessness [Unknown]
  - Flushing [Unknown]
  - Dizziness [Unknown]
  - Hair colour changes [Not Recovered/Not Resolved]
  - Madarosis [Not Recovered/Not Resolved]
  - Paraesthesia [Unknown]

NARRATIVE: CASE EVENT DATE: 201505
